FAERS Safety Report 20813934 (Version 4)
Quarter: 2022Q3

REPORT INFORMATION
  Report Type: Spontaneous
  Country: US (occurrence: US)
  Receive Date: 20220511
  Receipt Date: 20220930
  Transmission Date: 20221026
  Serious: Yes (Other)
  Sender: FDA-Public Use
  Company Number: US-CELGENE-USA-20220300793

PATIENT
  Age: 87 Year
  Sex: Female

DRUGS (2)
  1. REVLIMID [Suspect]
     Active Substance: LENALIDOMIDE
     Indication: Plasma cell myeloma
     Dosage: 1 CAPSULE (15 MILLIGRAM), DAILY ON DAYS 1-14 OF EACH 21 DAY OF CHEMOTHERAPY CYCLE
     Route: 048
     Dates: start: 20190308
  2. REVLIMID [Suspect]
     Active Substance: LENALIDOMIDE
     Dosage: FREQUENCY: EVERY DAY ON DAYS 1-14 OF A 21 DAY CYCLE.
     Route: 048
     Dates: start: 20190803

REACTIONS (12)
  - Haemorrhage [Unknown]
  - Hypoaesthesia [Unknown]
  - Tooth disorder [Recovered/Resolved]
  - Dizziness [Unknown]
  - Balance disorder [Unknown]
  - Oedema peripheral [Not Recovered/Not Resolved]
  - Pain in extremity [Not Recovered/Not Resolved]
  - Peripheral swelling [Unknown]
  - Joint swelling [Unknown]
  - Off label use [Unknown]
  - Paraesthesia [Unknown]
  - Nail disorder [Unknown]
